FAERS Safety Report 10421868 (Version 2)
Quarter: 2014Q3

REPORT INFORMATION
  Report Type: Spontaneous
  Country: DK (occurrence: DK)
  Receive Date: 20140901
  Receipt Date: 20140901
  Transmission Date: 20150326
  Serious: Yes (Other)
  Sender: FDA-Public Use
  Company Number: DK-ROCHE-1253265

PATIENT
  Age: 60 Year
  Sex: Female

DRUGS (3)
  1. ALENDRONATE SODIUM. [Concomitant]
     Active Substance: ALENDRONATE SODIUM
     Route: 065
  2. BONDRONAT [Suspect]
     Active Substance: IBANDRONIC ACID
     Indication: METASTASES TO BONE
     Dosage: LAST DOSE:13/MAR/2012
     Route: 048
     Dates: start: 200903, end: 20120313
  3. PROLIA [Concomitant]
     Active Substance: DENOSUMAB
     Dosage: FORM STRENGTH :60 MG/ML.
     Route: 065

REACTIONS (2)
  - Osteonecrosis of jaw [Not Recovered/Not Resolved]
  - Exposed bone in jaw [Unknown]

NARRATIVE: CASE EVENT DATE: 20120411
